FAERS Safety Report 21892190 (Version 1)
Quarter: 2023Q1

REPORT INFORMATION
  Report Type: Spontaneous
  Country: US (occurrence: None)
  Receive Date: 20230120
  Receipt Date: 20230120
  Transmission Date: 20230418
  Serious: No
  Sender: FDA-Public Use
  Company Number: None

PATIENT
  Age: 63 Year
  Sex: Male
  Weight: 67.05 kg

DRUGS (1)
  1. PRAVASTATIN [Suspect]
     Active Substance: PRAVASTATIN

REACTIONS (5)
  - Muscle twitching [None]
  - Feeling hot [None]
  - Paraesthesia [None]
  - Neuralgia [None]
  - Blood glucose increased [None]

NARRATIVE: CASE EVENT DATE: 20220101
